FAERS Safety Report 9198033 (Version 5)
Quarter: 2013Q3

REPORT INFORMATION
  Report Type: Spontaneous
  Country: US (occurrence: US)
  Receive Date: 20130328
  Receipt Date: 20130816
  Transmission Date: 20140515
  Serious: Yes (Hospitalization)
  Sender: FDA-Public Use
  Company Number: US-B.I. PHARMACEUTICALS,INC./RIDGEFIELD-2013-BI-08007BP

PATIENT
  Age: 66 Year
  Sex: Female
  Weight: 114.31 kg

DRUGS (10)
  1. PRADAXA [Suspect]
     Indication: ATRIAL FIBRILLATION
     Dosage: 300 MG
     Route: 048
     Dates: start: 20110510, end: 20110610
  2. LANOXIN [Concomitant]
  3. CARDIZEM CD [Concomitant]
  4. VASOTEC [Concomitant]
     Dosage: 10 MG
  5. LASIX [Concomitant]
     Dosage: 40 MG
  6. MOBIC [Concomitant]
     Indication: PAIN
  7. MOBIC [Concomitant]
     Indication: ARTHRITIS
  8. METFORMIN [Concomitant]
     Dosage: 500 MG
  9. SINGULAIR [Concomitant]
     Dosage: 10 MG
  10. ACIPHEX [Concomitant]
     Dosage: 20 MG
     Route: 048

REACTIONS (1)
  - Lower gastrointestinal haemorrhage [Recovered/Resolved]
